FAERS Safety Report 6692830-0 (Version None)
Quarter: 2010Q2

REPORT INFORMATION
  Report Type: 
  Country: None (occurrence: None)
  Receive Date: 20100422
  Receipt Date: 20100413
  Transmission Date: 20101027
  Serious: Yes (Hospitalization, Other)
  Sender: FDA-Public Use
  Company Number: US-BAXTER-2010BH009078

PATIENT
  Age: 66 Year
  Sex: Male

DRUGS (2)
  1. DIANEAL [Suspect]
     Indication: PERITONEAL DIALYSIS
     Route: 033
     Dates: start: 20100127, end: 20100215
  2. DIANEAL [Suspect]
     Route: 033
     Dates: start: 20100405

REACTIONS (4)
  - DYSPNOEA [None]
  - FLUID RETENTION [None]
  - PERITONEAL DISORDER [None]
  - PULMONARY OEDEMA [None]
